FAERS Safety Report 14504504 (Version 1)
Quarter: 2018Q1

REPORT INFORMATION
  Report Type: Spontaneous
  Country: US (occurrence: US)
  Receive Date: 20180208
  Receipt Date: 20180208
  Transmission Date: 20180509
  Serious: No
  Sender: FDA-Public Use
  Company Number: US-JNJFOC-20171234891

PATIENT
  Age: 59 Year
  Sex: Female
  Weight: 68.04 kg

DRUGS (2)
  1. TYLENOL 8HR [Suspect]
     Active Substance: ACETAMINOPHEN
     Route: 065
  2. TYLENOL 8HR [Suspect]
     Active Substance: ACETAMINOPHEN
     Indication: ARTHRITIS
     Dosage: 2 CAPLETS 2 X DAY
     Route: 065
     Dates: end: 20171225

REACTIONS (2)
  - Migraine [Not Recovered/Not Resolved]
  - Inappropriate schedule of drug administration [Unknown]
